FAERS Safety Report 5575303-8 (Version None)
Quarter: 2007Q4

REPORT INFORMATION
  Report Type: 
  Country: None (occurrence: None)
  Receive Date: 20071227
  Receipt Date: 20071218
  Transmission Date: 20080405
  Serious: Yes (Other)
  Sender: FDA-Public Use
  Company Number: US-PFIZER INC-2006027801

PATIENT
  Sex: Female
  Weight: 102.1 kg

DRUGS (5)
  1. BEXTRA [Suspect]
     Indication: PAIN
  2. NAPROXEN [Concomitant]
  3. METHYLPREDNISOLONE 16MG TAB [Concomitant]
  4. TETRACYCLINE [Concomitant]
  5. CEPHALEXIN [Concomitant]

REACTIONS (1)
  - STEVENS-JOHNSON SYNDROME [None]
